FAERS Safety Report 6419334-4 (Version None)
Quarter: 2009Q4

REPORT INFORMATION
  Report Type: 
  Country: None (occurrence: None)
  Receive Date: 20091029
  Receipt Date: 20091023
  Transmission Date: 20100525
  Serious: Yes (Hospitalization)
  Sender: FDA-Public Use
  Company Number: TR-ELI_LILLY_AND_COMPANY-TR200910005832

PATIENT
  Age: 72 Year
  Sex: Female

DRUGS (11)
  1. HUMALOG MIX 50/50 [Suspect]
     Indication: DIABETES MELLITUS
     Dosage: 40 U, EACH MORNING
     Route: 058
     Dates: start: 20080101
  2. HUMALOG MIX 50/50 [Suspect]
     Dosage: 28 U, EACH NOON
     Route: 058
     Dates: start: 20080101
  3. HUMALOG MIX 50/50 [Suspect]
     Dosage: 30 U, EACH EVENING
     Route: 058
     Dates: start: 20080101
  4. KARVEZIDE [Concomitant]
     Indication: HYPERTENSION
     Dosage: UNK, 2/D
     Route: 065
  5. DILATREND [Concomitant]
     Indication: HYPERTENSION
     Dosage: UNK UNK, 2/D
     Route: 065
  6. ATORVASTATIN [Concomitant]
     Indication: BLOOD CHOLESTEROL INCREASED
     Dosage: UNK, EACH MORNING
     Route: 065
  7. CORASPIN [Concomitant]
     Indication: CARDIAC DISORDER
     Dosage: UNK, EACH MORNING
     Route: 065
  8. SYMBICORT [Concomitant]
     Indication: ASTHMA
     Dosage: UNK, 2/D
     Route: 055
  9. LASIX [Concomitant]
     Indication: DIURETIC THERAPY
     Dosage: UNK, ONCE EVERY TWO DAYS
     Route: 065
  10. REFRESH [Concomitant]
     Indication: DRY EYE
     Dosage: UNK, 2/D
     Route: 047
  11. ALPHAGAN [Concomitant]
     Indication: EYE DISORDER
     Dosage: UNK, 3/D
     Route: 065

REACTIONS (2)
  - BLOOD GLUCOSE FLUCTUATION [None]
  - SWELLING [None]
